FAERS Safety Report 12025578 (Version 5)
Quarter: 2016Q3

REPORT INFORMATION
  Report Type: Report from Study
  Country: US (occurrence: US)
  Receive Date: 20160206
  Receipt Date: 20160930
  Transmission Date: 20161109
  Serious: Yes (Hospitalization, Other)
  Sender: FDA-Public Use
  Company Number: US-ABBVIE-15K-163-1487214-00

PATIENT
  Age: 76 Year
  Sex: Male
  Weight: 68.1 kg

DRUGS (15)
  1. ARAVA [Concomitant]
     Active Substance: LEFLUNOMIDE
     Indication: PRODUCT USED FOR UNKNOWN INDICATION
  2. LEFLUNOMIDE. [Concomitant]
     Active Substance: LEFLUNOMIDE
     Indication: RHEUMATOID ARTHRITIS
  3. INDAPAMIDE. [Concomitant]
     Active Substance: INDAPAMIDE
     Indication: HYPERTENSION
  4. HUMIRA [Suspect]
     Active Substance: ADALIMUMAB
     Indication: RHEUMATOID ARTHRITIS
     Route: 058
     Dates: start: 20150514, end: 20160412
  5. PARLODEL [Concomitant]
     Active Substance: BROMOCRIPTINE MESYLATE
     Indication: HYPOTHALAMO-PITUITARY DISORDER
  6. CRESTOR [Concomitant]
     Active Substance: ROSUVASTATIN CALCIUM
     Indication: BLOOD CHOLESTEROL INCREASED
  7. LUMIGAN [Concomitant]
     Active Substance: BIMATOPROST
     Indication: GLAUCOMA
  8. BROMOCRIPTINE [Concomitant]
     Active Substance: BROMOCRIPTINE
     Indication: PRODUCT USED FOR UNKNOWN INDICATION
  9. HYDROXYCHLOROQUINE [Concomitant]
     Active Substance: HYDROXYCHLOROQUINE
     Indication: RHEUMATOID ARTHRITIS
  10. LOSARTAN POTASSIUM. [Concomitant]
     Active Substance: LOSARTAN POTASSIUM
     Indication: HYPERTENSION
  11. BABY ASPIRIN [Concomitant]
     Active Substance: ASPIRIN
     Indication: PRODUCT USED FOR UNKNOWN INDICATION
  12. PLAQUENIL [Concomitant]
     Active Substance: HYDROXYCHLOROQUINE SULFATE
     Indication: PRODUCT USED FOR UNKNOWN INDICATION
  13. HUMIRA [Suspect]
     Active Substance: ADALIMUMAB
     Route: 058
     Dates: start: 20160615, end: 20160908
  14. RAPAFLO [Concomitant]
     Active Substance: SILODOSIN
     Indication: PROSTATOMEGALY
  15. TIMOLOL. [Concomitant]
     Active Substance: TIMOLOL
     Indication: GLAUCOMA

REACTIONS (32)
  - Arthralgia [Recovering/Resolving]
  - Bursitis [Recovered/Resolved]
  - Joint swelling [Recovered/Resolved]
  - Prostatomegaly [Recovering/Resolving]
  - Nerve root compression [Unknown]
  - Pain [Not Recovered/Not Resolved]
  - Hypertension [Recovered/Resolved]
  - Pain in extremity [Recovering/Resolving]
  - Weight decreased [Not Recovered/Not Resolved]
  - Dental caries [Not Recovered/Not Resolved]
  - Intervertebral disc disorder [Recovered/Resolved]
  - Bladder disorder [Not Recovered/Not Resolved]
  - Intervertebral disc protrusion [Not Recovered/Not Resolved]
  - Post procedural swelling [Recovered/Resolved]
  - Cerebrospinal fluid leakage [Unknown]
  - Dental caries [Recovered/Resolved]
  - Tooth fracture [Recovered/Resolved]
  - Headache [Recovered/Resolved]
  - Tooth abscess [Recovered/Resolved]
  - Gait disturbance [Not Recovered/Not Resolved]
  - Post procedural constipation [Recovered/Resolved]
  - Groin pain [Unknown]
  - Arthralgia [Unknown]
  - Peripheral swelling [Recovered/Resolved]
  - Urinary incontinence [Recovering/Resolving]
  - Nodule [Not Recovered/Not Resolved]
  - Back pain [Not Recovered/Not Resolved]
  - Faecaloma [Recovered/Resolved]
  - Arthralgia [Recovered/Resolved]
  - Lumbar radiculopathy [Recovered/Resolved]
  - Spinal fracture [Recovering/Resolving]
  - Insomnia [Not Recovered/Not Resolved]

NARRATIVE: CASE EVENT DATE: 2015
